FAERS Safety Report 4656504-X (Version None)
Quarter: 2005Q2

REPORT INFORMATION
  Report Type: 
  Country: None (occurrence: None)
  Receive Date: 20050504
  Receipt Date: 20050422
  Transmission Date: 20051028
  Serious: Yes (Other)
  Sender: FDA-Public Use
  Company Number: CHPA2005US01095

PATIENT
  Age: 51 Year
  Sex: Female
  Weight: 72.6 kg

DRUGS (1)
  1. TRANSDERM SCOP [Suspect]
     Indication: MOTION SICKNESS
     Dosage: TRANSDERMAL
     Route: 062
     Dates: start: 20050329, end: 20050401

REACTIONS (4)
  - ANXIETY [None]
  - CARDIAC DISORDER [None]
  - DEFAECATION URGENCY [None]
  - NAUSEA [None]
